FAERS Safety Report 10249707 (Version 1)
Quarter: 2014Q2

REPORT INFORMATION
  Report Type: Spontaneous
  Country: US (occurrence: US)
  Receive Date: 20140620
  Receipt Date: 20140620
  Transmission Date: 20141212
  Serious: No
  Sender: FDA-Public Use
  Company Number: US-BAYER-2014-092024

PATIENT
  Age: 49 Year
  Sex: Female
  Weight: 59 kg

DRUGS (4)
  1. ALEVE TABLET [Suspect]
     Indication: BACK PAIN
     Dosage: 8 DF IN 14 HOURS
     Route: 048
     Dates: start: 20140507, end: 20140507
  2. NYQUIL [Concomitant]
     Dosage: UNK
     Dates: start: 201403, end: 201405
  3. HALLS [Concomitant]
  4. TRAMADOL [Concomitant]

REACTIONS (2)
  - Extra dose administered [None]
  - Drug screen false positive [Recovered/Resolved]
